FAERS Safety Report 18996694 (Version 2)
Quarter: 2021Q2

REPORT INFORMATION
  Report Type: Spontaneous
  Country: JP (occurrence: JP)
  Receive Date: 20210311
  Receipt Date: 20210630
  Transmission Date: 20210717
  Serious: Yes (Other)
  Sender: FDA-Public Use
  Company Number: JP-BRISTOL-MYERS SQUIBB COMPANY-BMS-2021-024085

PATIENT
  Age: 7 Decade
  Sex: Female

DRUGS (2)
  1. OPDIVO [Suspect]
     Active Substance: NIVOLUMAB
     Indication: COLON CANCER
     Dosage: UNK
     Route: 041
  2. YERVOY [Suspect]
     Active Substance: IPILIMUMAB
     Indication: COLON CANCER
     Dosage: UNK
     Route: 041

REACTIONS (5)
  - Meningitis [Recovered/Resolved]
  - Adrenal insufficiency [Recovered/Resolved]
  - Thyroid hormones decreased [Recovered/Resolved]
  - Acute kidney injury [Recovered/Resolved]
  - Hypopituitarism [Recovered/Resolved]
